FAERS Safety Report 21974650 (Version 1)
Quarter: 2023Q1

REPORT INFORMATION
  Report Type: Spontaneous
  Country: CA (occurrence: CA)
  Receive Date: 20230209
  Receipt Date: 20230209
  Transmission Date: 20230417
  Serious: Yes (Other)
  Sender: FDA-Public Use
  Company Number: CA-FreseniusKabi-FK202301415

PATIENT
  Age: 32 Year
  Sex: Female

DRUGS (3)
  1. HYDROMORPHONE HCL [Suspect]
     Active Substance: HYDROMORPHONE HYDROCHLORIDE
     Indication: Drug use disorder
  2. FENTANYL [Suspect]
     Active Substance: FENTANYL
     Indication: Drug use disorder
     Route: 042
  3. METHADONE [Concomitant]
     Active Substance: METHADONE HYDROCHLORIDE
     Indication: Product used for unknown indication

REACTIONS (2)
  - Exposure during pregnancy [Unknown]
  - Postpartum haemorrhage [Unknown]
